FAERS Safety Report 7341077-3 (Version None)
Quarter: 2011Q1

REPORT INFORMATION
  Report Type: 
  Country: None (occurrence: None)
  Receive Date: 20110309
  Receipt Date: 20110302
  Transmission Date: 20110831
  Serious: Yes (Other)
  Sender: FDA-Public Use
  Company Number: US-AMGEN-USASP2011012118

PATIENT
  Age: 67 Year
  Sex: Female

DRUGS (3)
  1. HUMIRA [Concomitant]
  2. ENBREL [Suspect]
     Indication: PSORIATIC ARTHROPATHY
     Dosage: 50 MG, QWK
     Dates: start: 20101206
  3. ENBREL [Suspect]
     Indication: PSORIASIS

REACTIONS (4)
  - INFLAMMATION [None]
  - FEELING ABNORMAL [None]
  - PAIN IN EXTREMITY [None]
  - PARAESTHESIA [None]
